FAERS Safety Report 6590401 (Version 4)
Quarter: 2013Q3

REPORT INFORMATION
  Report Type: Report from Study
  Country: NL (occurrence: NL)
  Receive Date: 20080321
  Receipt Date: 20130827
  Transmission Date: 20140515
  Serious: Yes (Hospitalization, Other)
  Sender: FDA-Public Use
  Company Number: NL-JNJFOC-20080303039

PATIENT
  Age: 23 Year
  Sex: Female
  Weight: 70 kg

DRUGS (13)
  1. INFLIXIMAB [Suspect]
     Indication: CROHN^S DISEASE
     Route: 042
     Dates: start: 20070502
  2. INFLIXIMAB [Suspect]
     Indication: CROHN^S DISEASE
     Route: 042
     Dates: start: 20070416
  3. INFLIXIMAB [Suspect]
     Indication: CROHN^S DISEASE
     Route: 042
     Dates: start: 20051229
  4. INFLIXIMAB [Suspect]
     Indication: CROHN^S DISEASE
     Route: 042
     Dates: start: 20051011
  5. INFLIXIMAB [Suspect]
     Indication: CROHN^S DISEASE
     Route: 042
     Dates: start: 20050816
  6. INFLIXIMAB [Suspect]
     Indication: CROHN^S DISEASE
     Route: 042
     Dates: start: 20050720
  7. LANVIS [Concomitant]
     Indication: CROHN^S DISEASE
  8. ENTOCORT [Concomitant]
     Indication: CROHN^S DISEASE
     Route: 065
  9. MERCAPTOPURINE [Concomitant]
     Indication: CROHN^S DISEASE
     Dates: end: 20070903
  10. CALCICHEW [Concomitant]
     Indication: OSTEOPOROSIS PROPHYLAXIS
     Route: 065
  11. ACTONEL [Concomitant]
     Indication: OSTEOPOROSIS PROPHYLAXIS
     Route: 065
  12. VITAMIN B 12 [Concomitant]
  13. FOLIAMIN [Concomitant]
     Indication: CROHN^S DISEASE
     Route: 065

REACTIONS (8)
  - Sepsis [Recovered/Resolved]
  - Drug hypersensitivity [Unknown]
  - Caecum operation [Unknown]
  - Abdominal adhesions [Recovered/Resolved]
  - Peritonitis [Recovered/Resolved]
  - Enterostomy [Unknown]
  - Sopor [Recovered/Resolved]
  - Intestinal resection [Recovered/Resolved]
